FAERS Safety Report 5514908-7 (Version None)
Quarter: 2007Q4

REPORT INFORMATION
  Report Type: 
  Country: None (occurrence: None)
  Receive Date: 20071113
  Receipt Date: 20060928
  Transmission Date: 20080405
  Serious: No
  Sender: FDA-Public Use
  Company Number: A0621816A

PATIENT
  Age: 49 Year
  Sex: Female

DRUGS (2)
  1. COREG [Suspect]
     Indication: HYPERTENSION
     Dosage: 25MG TWICE PER DAY
     Route: 048
     Dates: start: 20040101, end: 20060101
  2. PRINIVIL [Concomitant]

REACTIONS (3)
  - CHEST PAIN [None]
  - DYSPNOEA [None]
  - HEART RATE DECREASED [None]
